FAERS Safety Report 10582869 (Version 1)
Quarter: 2014Q4

REPORT INFORMATION
  Report Type: Spontaneous
  Country: IT (occurrence: IT)
  Receive Date: 20141114
  Receipt Date: 20141114
  Transmission Date: 20150529
  Serious: Yes (Hospitalization)
  Sender: FDA-Public Use
  Company Number: IT-ROCHE-1490048

PATIENT
  Age: 55 Year
  Sex: Male

DRUGS (1)
  1. CELLCEPT [Suspect]
     Active Substance: MYCOPHENOLATE MOFETIL\MYCOPHENOLATE MOFETIL HYDROCHLORIDE
     Indication: PROPHYLAXIS AGAINST TRANSPLANT REJECTION
     Route: 048
     Dates: start: 20070613, end: 20140225

REACTIONS (2)
  - Enterocolitis haemorrhagic [Unknown]
  - Chronic graft versus host disease [Not Recovered/Not Resolved]

NARRATIVE: CASE EVENT DATE: 20140829
